FAERS Safety Report 6757639-8 (Version None)
Quarter: 2010Q2

REPORT INFORMATION
  Report Type: 
  Country: None (occurrence: None)
  Receive Date: 20100607
  Receipt Date: 20100526
  Transmission Date: 20101027
  Serious: Yes (Other)
  Sender: FDA-Public Use
  Company Number: ES-JNJFOC-20100507996

PATIENT
  Sex: Female

DRUGS (2)
  1. STELARA [Suspect]
     Indication: PUSTULAR PSORIASIS
     Route: 058
  2. ISONIAZID [Concomitant]
     Indication: ANTIBIOTIC PROPHYLAXIS
     Route: 048

REACTIONS (5)
  - LEUKOCYTOSIS [None]
  - LYMPHOCYTOSIS [None]
  - MONOCYTOSIS [None]
  - NEUTROPHILIA [None]
  - OFF LABEL USE [None]
